FAERS Safety Report 15757857 (Version 11)
Quarter: 2020Q3

REPORT INFORMATION
  Report Type: Other
  Country: CA (occurrence: CA)
  Receive Date: 20181225
  Receipt Date: 20200715
  Transmission Date: 20201102
  Serious: Yes (Other)
  Sender: FDA-Public Use
  Company Number: CA-ROCHE-2232505

PATIENT
  Age: 72 Year
  Sex: Female

DRUGS (20)
  1. METHOTREXATE. [Concomitant]
     Active Substance: METHOTREXATE
     Route: 058
  2. METOPROLOL. [Concomitant]
     Active Substance: METOPROLOL
     Route: 048
  3. TYLENOL [Concomitant]
     Active Substance: ACETAMINOPHEN
     Indication: PREMEDICATION
     Route: 048
     Dates: start: 20181212
  4. SOLU?MEDROL [Concomitant]
     Active Substance: METHYLPREDNISOLONE SODIUM SUCCINATE
     Indication: PREMEDICATION
     Route: 042
     Dates: start: 20181212
  5. CITALOPRAM [Concomitant]
     Active Substance: CITALOPRAM HYDROBROMIDE
     Route: 048
  6. LORAZEPAM. [Concomitant]
     Active Substance: LORAZEPAM
     Route: 048
  7. BENADRYL [Concomitant]
     Active Substance: DIPHENHYDRAMINE HYDROCHLORIDE
     Indication: PREMEDICATION
     Route: 048
     Dates: start: 20181212
  8. AMLODIPINE [Concomitant]
     Active Substance: AMLODIPINE BESYLATE
     Route: 048
  9. NOVO?GESIC [Concomitant]
     Active Substance: ACETAMINOPHEN
     Route: 048
  10. MCAL [Concomitant]
     Route: 048
  11. RITUXAN [Suspect]
     Active Substance: RITUXIMAB
     Indication: RHEUMATOID ARTHRITIS
     Dosage: DAY 1,15;?PREVIOUS RITUXIMAB INFUSION: 05/JUN/2019.
     Route: 042
     Dates: start: 20181212
  12. HYDROXYCHLOROQUINE [Concomitant]
     Active Substance: HYDROXYCHLOROQUINE
  13. EURO?FOLIC [Concomitant]
     Active Substance: FOLIC ACID
     Route: 048
  14. PANTOLOC [Concomitant]
     Active Substance: PANTOPRAZOLE SODIUM
     Route: 048
  15. PRAVASTATIN. [Concomitant]
     Active Substance: PRAVASTATIN
     Route: 048
  16. ALENDRONATE [Concomitant]
     Active Substance: ALENDRONATE SODIUM
     Route: 048
  17. NAPROXEN. [Concomitant]
     Active Substance: NAPROXEN
  18. CORTISONE [Concomitant]
     Active Substance: CORTISONE
     Dosage: FOR 2 MONTHS
  19. PERINDOPRIL [Concomitant]
     Active Substance: PERINDOPRIL
     Indication: PRODUCT USED FOR UNKNOWN INDICATION
     Route: 065
  20. EURO?D [Concomitant]
     Route: 048

REACTIONS (20)
  - Dysgeusia [Recovered/Resolved]
  - Mass [Not Recovered/Not Resolved]
  - Unevaluable event [Not Recovered/Not Resolved]
  - Enteritis infectious [Unknown]
  - Blood pressure systolic increased [Unknown]
  - Sensory disturbance [Recovered/Resolved]
  - Fatigue [Unknown]
  - Blood pressure increased [Unknown]
  - Body temperature decreased [Unknown]
  - Oxygen saturation decreased [Unknown]
  - Myalgia [Unknown]
  - Angina pectoris [Recovered/Resolved]
  - Arthralgia [Recovered/Resolved]
  - Nervousness [Unknown]
  - Infusion related reaction [Unknown]
  - Cardiac failure [Unknown]
  - Cough [Unknown]
  - Blood pressure systolic abnormal [Unknown]
  - Fatigue [Unknown]
  - Anxiety [Not Recovered/Not Resolved]

NARRATIVE: CASE EVENT DATE: 20181212
